FAERS Safety Report 9189545 (Version 1)
Quarter: 2013Q1

REPORT INFORMATION
  Report Type: Spontaneous
  Country: US (occurrence: US)
  Receive Date: 20130326
  Receipt Date: 20130326
  Transmission Date: 20140127
  Serious: Yes (Hospitalization, Other)
  Sender: FDA-Public Use
  Company Number: US-AMGEN-USASP2013019602

PATIENT
  Age: 56 Year
  Sex: Male

DRUGS (3)
  1. ENBREL [Suspect]
     Indication: RHEUMATOID ARTHRITIS
     Dosage: 25 MG, 3 TIMES/WK
     Dates: start: 20080115
  2. HUMIRA [Suspect]
     Dosage: UNK
  3. ARAVA [Concomitant]
     Dosage: UNK

REACTIONS (5)
  - Poor peripheral circulation [Recovered/Resolved]
  - Vascular graft occlusion [Recovered/Resolved]
  - Graft complication [Recovered/Resolved]
  - Pain in extremity [Recovered/Resolved]
  - Therapeutic product ineffective [Recovered/Resolved]
